FAERS Safety Report 8778734 (Version 4)
Quarter: 2012Q4

REPORT INFORMATION
  Report Type: 
  Country: US (occurrence: US)
  Receive Date: 20120912
  Receipt Date: 20121018
  Transmission Date: 20130627
  Serious: No
  Sender: FDA-Public Use
  Company Number: US-PFIZER INC-2011297097

PATIENT
  Sex: Female

DRUGS (1)
  1. LYRICA [Suspect]
     Dosage: UNK

REACTIONS (11)
  - Vision blurred [Unknown]
  - Swelling [Unknown]
  - Nervousness [Unknown]
  - Anxiety [Unknown]
  - Confusional state [Unknown]
  - Stress [Unknown]
  - Insomnia [Unknown]
  - Weight increased [Unknown]
  - Tongue dry [Unknown]
  - Pain [Unknown]
  - Neuropathy peripheral [Unknown]
